FAERS Safety Report 8949641 (Version 6)
Quarter: 2013Q2

REPORT INFORMATION
  Report Type: Spontaneous
  Country: JP (occurrence: JP)
  Receive Date: 20121206
  Receipt Date: 20130403
  Transmission Date: 20140414
  Serious: Yes (Life-Threatening, Hospitalization, Other)
  Sender: FDA-Public Use
  Company Number: JP-PFIZER INC-2012306714

PATIENT
  Age: 74 Year
  Sex: Male
  Weight: 77 kg

DRUGS (21)
  1. LYRICA [Suspect]
     Indication: NEUROPATHY PERIPHERAL
     Dosage: 150 MG, 1X/DAY
     Route: 048
     Dates: start: 20121105, end: 20121113
  2. LYRICA [Suspect]
     Indication: BACK PAIN
     Dosage: 150 MG, 2X/DAY
     Route: 048
     Dates: start: 20121114, end: 20121123
  3. PRAZAXA [Concomitant]
     Indication: ATRIAL FIBRILLATION
     Dosage: 110 MG, 2X/DAY
     Route: 048
     Dates: start: 201206
  4. PRAZAXA [Concomitant]
     Indication: PROPHYLAXIS
  5. TAKEPRON [Concomitant]
     Indication: PROPHYLAXIS AGAINST GASTROINTESTINAL ULCER
     Dosage: 1 DF, 1X/DAY
     Route: 048
  6. MALFA [Concomitant]
     Indication: PROPHYLAXIS AGAINST GASTROINTESTINAL ULCER
     Dosage: 20 ML, 3X/DAY
     Route: 048
  7. MYSLEE [Concomitant]
     Indication: INSOMNIA
     Dosage: UNK
     Route: 048
  8. MOHRUS [Concomitant]
     Indication: BACK PAIN
     Dosage: UNK
  9. MUCOSOLVAN [Concomitant]
     Indication: PRODUCTIVE COUGH
     Dosage: UNK
     Route: 048
  10. DIGOXIN [Concomitant]
     Indication: ATRIAL FIBRILLATION
     Dosage: 0.25 MG, 1X/DAY
     Route: 048
  11. DIOVAN ^CIBA-GEIGY^ [Concomitant]
     Indication: HYPERTENSION
     Dosage: 80 MG, 2X/DAY
     Route: 048
  12. CONIEL [Concomitant]
     Indication: HYPERTENSION
     Dosage: 4 MG, 2X/DAY
     Route: 048
  13. AMLODIN [Concomitant]
     Indication: HYPERTENSION
     Dosage: 5 MG, 2X/DAY
     Route: 048
  14. MAINTATE [Concomitant]
     Indication: HYPERTENSION
     Dosage: 5 MG, 1X/DAY
     Route: 048
  15. NATRIX [Concomitant]
     Indication: HYPERTENSION
     Dosage: 0.5 MG, 1X/DAY
     Route: 048
  16. ALLOPURINOL [Concomitant]
     Indication: HYPERURICAEMIA
     Dosage: 100 MG, 2X/DAY
     Route: 048
  17. SM [Concomitant]
     Indication: GASTRIC ULCER
     Dosage: 1 G, 3X/DAY
     Route: 048
  18. GASCON [Concomitant]
     Indication: GASTRIC ULCER
     Dosage: 40 MG, 3X/DAY
     Route: 048
  19. LIKMOSS [Concomitant]
     Indication: PROSTATITIS
     Dosage: 200 MG, 2X/DAY
     Route: 048
  20. CERNILTON [Concomitant]
     Indication: BENIGN PROSTATIC HYPERPLASIA
     Dosage: 2 DF, 3X/DAY
     Route: 048
  21. TAMSLON [Concomitant]
     Indication: BENIGN PROSTATIC HYPERPLASIA
     Dosage: 0.2 MG, 2X/DAY
     Route: 048

REACTIONS (5)
  - Non-cardiogenic pulmonary oedema [Recovered/Resolved]
  - Stomatitis [Recovered/Resolved]
  - Eyelid oedema [Recovered/Resolved]
  - Blood creatinine increased [Unknown]
  - Blood urea increased [Unknown]
